FAERS Safety Report 11680504 (Version 2)
Quarter: 2015Q4

REPORT INFORMATION
  Report Type: Spontaneous
  Country: US (occurrence: US)
  Receive Date: 20151027
  Receipt Date: 20151104
  Transmission Date: 20160304
  Serious: No
  Sender: FDA-Public Use
  Company Number: US-ELI_LILLY_AND_COMPANY-US201009007904

PATIENT
  Age: 79 Year
  Sex: Female

DRUGS (5)
  1. FORTEO [Suspect]
     Active Substance: TERIPARATIDE
     Dosage: 20 UG, DAILY (1/D)
  2. FORTEO [Suspect]
     Active Substance: TERIPARATIDE
     Dosage: 20 UG, QD
  3. FORTEO [Suspect]
     Active Substance: TERIPARATIDE
     Indication: OSTEOPOROSIS
     Dosage: 20 UG, DAILY (1/D)
     Dates: start: 20100903
  4. FORTEO [Suspect]
     Active Substance: TERIPARATIDE
     Dosage: 20 UG, DAILY (1/D)
  5. FORTEO [Suspect]
     Active Substance: TERIPARATIDE
     Dosage: 20 UG, QD

REACTIONS (16)
  - Pain in extremity [Not Recovered/Not Resolved]
  - Back pain [Unknown]
  - Asthenia [Unknown]
  - Injection site erythema [Unknown]
  - Muscle spasms [Recovered/Resolved]
  - Intervertebral disc disorder [Unknown]
  - Skin reaction [Not Recovered/Not Resolved]
  - Contusion [Unknown]
  - Pain [Unknown]
  - Arthritis [Unknown]
  - Injection site haemorrhage [Unknown]
  - Arthralgia [Recovering/Resolving]
  - Constipation [Unknown]
  - Pain in extremity [Unknown]
  - Bone pain [Recovering/Resolving]
  - Myalgia [Recovering/Resolving]

NARRATIVE: CASE EVENT DATE: 201009
